FAERS Safety Report 23338285 (Version 2)
Quarter: 2024Q1

REPORT INFORMATION
  Report Type: Report from Study
  Country: US (occurrence: US)
  Receive Date: 20231226
  Receipt Date: 20240226
  Transmission Date: 20240410
  Serious: Yes (Death, Hospitalization, Other)
  Sender: FDA-Public Use
  Company Number: US-SANOFI-01886129

PATIENT
  Age: 85 Year
  Sex: Male

DRUGS (2)
  1. INSULIN GLARGINE [Suspect]
     Active Substance: INSULIN GLARGINE
     Indication: Type 2 diabetes mellitus
     Dosage: 7 IU, QD
     Route: 065
     Dates: start: 20230706
  2. INSULIN GLARGINE [Suspect]
     Active Substance: INSULIN GLARGINE
     Indication: Diabetes mellitus

REACTIONS (4)
  - Chronic obstructive pulmonary disease [Fatal]
  - Pulmonary oedema [Fatal]
  - Unresponsive to stimuli [Fatal]
  - Septic shock [Fatal]

NARRATIVE: CASE EVENT DATE: 20231211
